FAERS Safety Report 23114505 (Version 3)
Quarter: 2024Q1

REPORT INFORMATION
  Report Type: Report from Study
  Country: CO (occurrence: CO)
  Receive Date: 20231027
  Receipt Date: 20240131
  Transmission Date: 20240410
  Serious: Yes (Hospitalization)
  Sender: FDA-Public Use
  Company Number: CO-AMGEN-COLSL2023136237

PATIENT
  Age: 40 Year
  Sex: Male

DRUGS (6)
  1. VECTIBIX [Suspect]
     Active Substance: PANITUMUMAB
     Indication: Colorectal cancer metastatic
     Dosage: UNK, Q2WK
     Route: 065
     Dates: start: 20230303
  2. VECTIBIX [Suspect]
     Active Substance: PANITUMUMAB
     Dosage: UNK, Q2WK
     Route: 065
     Dates: start: 20230614
  3. VECTIBIX [Suspect]
     Active Substance: PANITUMUMAB
     Dosage: 500 MILLIGRAM, QUINCENNIAL
     Route: 065
  4. POLYVINYL ALCOHOL [Concomitant]
     Active Substance: POLYVINYL ALCOHOL
     Dosage: UNK UNK, Q8H, ONE DROP IN EACH EYE
     Route: 065
     Dates: start: 20230816
  5. POLYVINYL ALCOHOL [Concomitant]
     Active Substance: POLYVINYL ALCOHOL
     Dosage: UNK UNK, Q12H (APPLY 1 DROP IN EACH EYE EVERY 12 HOURS)
     Route: 065
     Dates: start: 20231020
  6. POLYVINYL ALCOHOL [Concomitant]
     Active Substance: POLYVINYL ALCOHOL
     Dosage: 15 MILLIGRAM, Q12H (APPLY 1 DROP IN EACH EYE EVERY 12 HOURS)
     Route: 065
     Dates: start: 20240124

REACTIONS (3)
  - Skin burning sensation [Recovered/Resolved]
  - Rash [Not Recovered/Not Resolved]
  - Skin lesion [Not Recovered/Not Resolved]

NARRATIVE: CASE EVENT DATE: 20230101
